FAERS Safety Report 7071502-7 (Version None)
Quarter: 2010Q4

REPORT INFORMATION
  Report Type: 
  Country: None (occurrence: None)
  Receive Date: 20101029
  Receipt Date: 20090914
  Transmission Date: 20110411
  Serious: No
  Sender: FDA-Public Use
  Company Number: A0807238A

PATIENT
  Age: 70 Year
  Sex: Male

DRUGS (3)
  1. ADVAIR DISKUS 100/50 [Suspect]
     Indication: WHEEZING
     Dosage: 1PUFF TWICE PER DAY
     Route: 055
     Dates: start: 20090911
  2. ZETIA [Concomitant]
  3. PERCOGESIC [Concomitant]

REACTIONS (2)
  - DRY MOUTH [None]
  - MUSCLE SPASMS [None]
